FAERS Safety Report 7795046-X (Version None)
Quarter: 2011Q4

REPORT INFORMATION
  Report Type: 
  Country: None (occurrence: None)
  Receive Date: 20111004
  Receipt Date: 20110921
  Transmission Date: 20120403
  Serious: No
  Sender: FDA-Public Use
  Company Number: US-B.I. PHARMACEUTICALS,INC./RIDGEFIELD-2011-BP-19731BP

PATIENT
  Age: 84 Year
  Sex: Female

DRUGS (8)
  1. TEKTURNA [Concomitant]
  2. COREG [Concomitant]
  3. COUMADIN [Concomitant]
  4. SYNTHROID [Concomitant]
  5. COMBIVENT [Suspect]
     Indication: BRONCHITIS
  6. DILTIAZEM HCL [Concomitant]
  7. GLIPIZIDE [Concomitant]
  8. LANTUS [Concomitant]

REACTIONS (2)
  - CYSTITIS [None]
  - BRONCHITIS [None]
